FAERS Safety Report 26100610 (Version 1)
Quarter: 2025Q4

REPORT INFORMATION
  Report Type: Spontaneous
  Country: CN (occurrence: CN)
  Receive Date: 20251128
  Receipt Date: 20251128
  Transmission Date: 20260117
  Serious: Yes (Other)
  Sender: ROCHE
  Company Number: CN-CHEPLA-2025013225

PATIENT
  Age: 68 Year
  Sex: Female
  Weight: 41 kg

DRUGS (2)
  1. BEVACIZUMAB [Suspect]
     Active Substance: BEVACIZUMAB
     Indication: Colon cancer
     Dosage: APPROVAL NO. S20190040
     Route: 042
     Dates: start: 20251011, end: 20251011
  2. XELODA [Suspect]
     Active Substance: CAPECITABINE
     Indication: Colon cancer
     Dosage: APPROVAL NO. GYZZ H20073024; 1.5G BID
     Route: 048
     Dates: start: 20251011, end: 20251012

REACTIONS (1)
  - Myelosuppression [Recovering/Resolving]

NARRATIVE: CASE EVENT DATE: 20251104
